FAERS Safety Report 16501755 (Version 2)
Quarter: 2019Q3

REPORT INFORMATION
  Report Type: Spontaneous
  Country: JP (occurrence: JP)
  Receive Date: 20190701
  Receipt Date: 20190710
  Transmission Date: 20191004
  Serious: No
  Sender: FDA-Public Use
  Company Number: JP-EISAI MEDICAL RESEARCH-EC-2019-053353

PATIENT
  Age: 65 Year
  Sex: Male
  Weight: 62 kg

DRUGS (6)
  1. WARFARIN [Interacting]
     Active Substance: WARFARIN
     Route: 048
  2. LENVIMA [Suspect]
     Active Substance: LENVATINIB
     Indication: HEPATOCELLULAR CARCINOMA
     Route: 048
     Dates: start: 20180725
  3. WARFARIN [Interacting]
     Active Substance: WARFARIN
     Indication: PRODUCT USED FOR UNKNOWN INDICATION
     Route: 048
  4. LENVIMA [Interacting]
     Active Substance: LENVATINIB
     Dosage: SUSPENDED AND RESUMPTION WERE REPEATED (DOSE AND FREQUENCY UNKNOWN)
     Route: 048
  5. LENVIMA [Interacting]
     Active Substance: LENVATINIB
     Route: 048
  6. WARFARIN [Interacting]
     Active Substance: WARFARIN
     Route: 048

REACTIONS (4)
  - Proteinuria [Unknown]
  - Drug interaction [Recovered/Resolved]
  - Malaise [Unknown]
  - International normalised ratio increased [Recovered/Resolved]
